FAERS Safety Report 10498393 (Version 1)
Quarter: 2014Q4

REPORT INFORMATION
  Report Type: Spontaneous
  Country: US (occurrence: None)
  Receive Date: 20141003
  Receipt Date: 20141003
  Transmission Date: 20150528
  Serious: Yes (Disabling)
  Sender: FDA-Public Use
  Company Number: None

PATIENT
  Age: 36 Year
  Sex: Female
  Weight: 65.77 kg

DRUGS (1)
  1. SYNTHROID [Suspect]
     Active Substance: LEVOTHYROXINE SODIUM
     Indication: AUTOIMMUNE THYROIDITIS
     Dosage: 1 PILL ONCE DAILY
     Route: 048
     Dates: start: 20140701, end: 20141002

REACTIONS (4)
  - Discomfort [None]
  - Pruritus [None]
  - Photosensitivity reaction [None]
  - Urticaria [None]

NARRATIVE: CASE EVENT DATE: 20140501
